FAERS Safety Report 7408747-X (Version None)
Quarter: 2011Q2

REPORT INFORMATION
  Report Type: 
  Country: None (occurrence: None)
  Receive Date: 20110412
  Receipt Date: 20110330
  Transmission Date: 20111010
  Serious: Yes (Hospitalization)
  Sender: FDA-Public Use
  Company Number: FR-ELI_LILLY_AND_COMPANY-FR201103008392

PATIENT
  Sex: Male

DRUGS (3)
  1. ELOXATIN [Concomitant]
     Dosage: 160 MG, UNKNOWN
     Route: 042
     Dates: start: 20101119, end: 20101119
  2. DOCETAXEL [Concomitant]
     Dosage: 140 MG, UNKNOWN
     Route: 042
     Dates: start: 20101119, end: 20101119
  3. GEMZAR [Suspect]
     Dosage: 1995 MG/M2, AT DAY 1, 8 AND 15 OF 28 DAY CYCLE
     Dates: start: 20101119, end: 20101128

REACTIONS (2)
  - COOMBS NEGATIVE HAEMOLYTIC ANAEMIA [None]
  - ABDOMINAL PAIN [None]
